FAERS Safety Report 8785043 (Version 1)
Quarter: 2012Q4

REPORT INFORMATION
  Report Type: 
  Country: US (occurrence: US)
  Receive Date: 20120914
  Receipt Date: 20120914
  Transmission Date: 20130627
  Serious: No
  Sender: FDA-Public Use
  Company Number: US-BAYER-2012-095871

PATIENT
  Sex: Female
  Weight: 84 kg

DRUGS (2)
  1. BETASERON [Suspect]
     Dosage: .25 mg, QOD
     Route: 058
  2. ZETIA [Concomitant]
     Dosage: 10 mg, UNK

REACTIONS (1)
  - Injection site rash [Unknown]
